FAERS Safety Report 9686685 (Version 2)
Quarter: 2013Q4

REPORT INFORMATION
  Report Type: Spontaneous
  Country: DE (occurrence: DE)
  Receive Date: 20131113
  Receipt Date: 20131113
  Transmission Date: 20140711
  Serious: Yes (Death, Hospitalization)
  Sender: FDA-Public Use
  Company Number: DE-ACORDA-ACO_28197_2011

PATIENT
  Sex: Female

DRUGS (5)
  1. FAMPYRA [Suspect]
     Dosage: 10 MG, BID
     Route: 048
     Dates: start: 201109, end: 201109
  2. TYSABRI [Suspect]
     Indication: MULTIPLE SCLEROSIS
     Dosage: 300 MG, MONTHLY
     Route: 042
     Dates: start: 20090707, end: 20110915
  3. LYRICA [Concomitant]
     Indication: PARAESTHESIA
     Dosage: UNK
     Dates: start: 201106, end: 201109
  4. LYRICA [Concomitant]
     Indication: NEURALGIA
  5. AZATHIOPRINE [Concomitant]
     Indication: AUTOIMMUNE HEPATITIS
     Dosage: UNK

REACTIONS (2)
  - Drug-induced liver injury [Recovered/Resolved]
  - Multiple sclerosis relapse [Not Recovered/Not Resolved]
